FAERS Safety Report 21459417 (Version 1)
Quarter: 2022Q4

REPORT INFORMATION
  Report Type: Spontaneous
  Country: US (occurrence: None)
  Receive Date: 20221014
  Receipt Date: 20221014
  Transmission Date: 20230113
  Serious: No
  Sender: FDA-Public Use
  Company Number: None

PATIENT
  Age: 54 Year
  Sex: Male

DRUGS (2)
  1. JAKAFI [Suspect]
     Active Substance: RUXOLITINIB
     Dosage: FREQUENCY : TWICE A DAY;?
     Route: 048
  2. JAKAFI [Concomitant]
     Active Substance: RUXOLITINIB
     Dates: start: 20220916

REACTIONS (1)
  - Memory impairment [None]

NARRATIVE: CASE EVENT DATE: 20221013
